FAERS Safety Report 9316127 (Version 1)
Quarter: 2013Q2

REPORT INFORMATION
  Report Type: Report from Study
  Country: FR (occurrence: FR)
  Receive Date: 20130530
  Receipt Date: 20130530
  Transmission Date: 20140414
  Serious: Yes (Death, Hospitalization)
  Sender: FDA-Public Use
  Company Number: FR-ROCHE-1224884

PATIENT
  Age: 42 Year
  Sex: 0

DRUGS (9)
  1. BEVACIZUMAB [Suspect]
     Indication: COLON CANCER
     Dosage: LASR DOSE RECIEVE : 275 MG, LAST DOSE PRIOR TO SAE: 28/MAR/2013
     Route: 042
  2. IRINOTECAN [Suspect]
     Indication: COLON CANCER
     Dosage: LAST DOSE RECIEVED:280 MG, LAST DOSE PRIOR TO SAE: 28/MAR/2013
     Route: 065
  3. CALCIUM FOLINATE [Suspect]
     Indication: COLON CANCER
     Dosage: LAST DOSE RECIEVED:307MG, LAST DOSE PRIOR TO SAE: 28/MAR/2013
     Route: 065
  4. FLUOROURACIL [Suspect]
     Indication: COLON CANCER
     Dosage: LAST BOLUS DOSE RECIEVED:600MG, LAST DOSE PRIOR TO SAE: 28/MAR/2013
     Route: 065
  5. FLUOROURACIL [Suspect]
     Dosage: LAST DOSE PRIOR TO SAE: 28/MAR/2013, LAST CONTINUOUS DOSE RECIEVED:2750 MG
     Route: 065
  6. ARANESP [Concomitant]
     Indication: ANAEMIA
     Route: 065
     Dates: start: 20130313, end: 20130510
  7. SOLU-MEDROL [Concomitant]
     Route: 065
     Dates: start: 20130205, end: 20130510
  8. KYTRIL [Concomitant]
     Indication: PROPHYLAXIS OF NAUSEA AND VOMITING
     Route: 065
     Dates: start: 20121005, end: 20130510
  9. ATROPINE [Concomitant]
     Indication: ALLERGY PROPHYLAXIS
     Route: 065
     Dates: start: 20111005, end: 20130510

REACTIONS (2)
  - General physical health deterioration [Fatal]
  - Gastrointestinal obstruction [Recovered/Resolved]
